FAERS Safety Report 7557600-X (Version None)
Quarter: 2011Q2

REPORT INFORMATION
  Report Type: 
  Country: None (occurrence: None)
  Receive Date: 20110620
  Receipt Date: 20110608
  Transmission Date: 20111010
  Serious: Yes (Death)
  Sender: FDA-Public Use
  Company Number: TR-ACTELION-A-CH2011-50043

PATIENT
  Sex: Male
  Weight: 17.5 kg

DRUGS (2)
  1. TRACLEER [Suspect]
     Dosage: 31.25 MG, QD
     Route: 048
     Dates: start: 20100701, end: 20100801
  2. TRACLEER [Suspect]
     Indication: PULMONARY ARTERIAL HYPERTENSION
     Dosage: 62.5 MG, QD
     Route: 048
     Dates: start: 20100801

REACTIONS (3)
  - PULMONARY ARTERIAL HYPERTENSION [None]
  - DISEASE PROGRESSION [None]
  - CARDIAC FAILURE [None]
